FAERS Safety Report 22258016 (Version 1)
Quarter: 2023Q2

REPORT INFORMATION
  Report Type: Spontaneous
  Country: GB (occurrence: None)
  Receive Date: 20230427
  Receipt Date: 20230427
  Transmission Date: 20230721
  Serious: Yes (Death, Life-Threatening, Hospitalization, Other)
  Sender: FDA-Public Use
  Company Number: GB-MLMSERVICE-20230417-4227337-1

PATIENT
  Age: 74 Year
  Sex: Female

DRUGS (1)
  1. METHOTREXATE [Suspect]
     Active Substance: METHOTREXATE
     Indication: Product used for unknown indication

REACTIONS (17)
  - Toxicity to various agents [Fatal]
  - Pancytopenia [Fatal]
  - Liver function test abnormal [Fatal]
  - Hypervolaemia [Fatal]
  - Ascites [Fatal]
  - Diarrhoea [Fatal]
  - Pleural effusion [Fatal]
  - Hyperferritinaemia [Recovering/Resolving]
  - Vitamin B12 increased [Unknown]
  - Folate deficiency [Unknown]
  - C-reactive protein increased [Unknown]
  - Hypoalbuminaemia [Unknown]
  - Hyperbilirubinaemia [Unknown]
  - Blood alkaline phosphatase increased [Unknown]
  - Cachexia [Unknown]
  - Haemophagocytic lymphohistiocytosis [Unknown]
  - Atelectasis [Unknown]
